FAERS Safety Report 7911973-4 (Version None)
Quarter: 2011Q4

REPORT INFORMATION
  Report Type: 
  Country: None (occurrence: None)
  Receive Date: 20111114
  Receipt Date: 20111110
  Transmission Date: 20120403
  Serious: Yes (Death, Hospitalization)
  Sender: FDA-Public Use
  Company Number: JP-JNJFOC-20100402642

PATIENT
  Sex: Female
  Weight: 40 kg

DRUGS (22)
  1. FAMOTIDINE [Concomitant]
     Route: 048
  2. PROCHLORPERAZINE [Concomitant]
     Route: 048
     Dates: start: 20090902, end: 20090915
  3. ZYPREXA [Concomitant]
     Route: 048
     Dates: start: 20090918
  4. BETAMETHASONE [Concomitant]
     Route: 042
     Dates: start: 20090923
  5. SENNOSIDE [Concomitant]
     Route: 048
  6. MUCOSTA [Concomitant]
     Route: 048
     Dates: start: 20090902, end: 20090915
  7. DOXORUBICIN HCL [Suspect]
     Indication: OVARIAN CANCER RECURRENT
     Dosage: CYCLE 1
     Route: 042
     Dates: start: 20090819, end: 20090819
  8. ZOLPIDEM [Concomitant]
     Route: 048
  9. PACETCOOL [Concomitant]
     Route: 042
     Dates: start: 20091002
  10. DICLOFENAC SODIUM [Concomitant]
     Route: 054
  11. HALCION [Concomitant]
     Route: 048
     Dates: start: 20090924
  12. ANPEC [Concomitant]
     Route: 054
     Dates: start: 20091013
  13. CEFAZOLIN SODIUM [Concomitant]
     Route: 041
     Dates: start: 20090914, end: 20090924
  14. UNASYN [Concomitant]
     Route: 042
     Dates: start: 20090925, end: 20090929
  15. OXYCONTIN [Suspect]
     Indication: ILL-DEFINED DISORDER
     Route: 048
     Dates: start: 20090826, end: 20090902
  16. DEPAS [Concomitant]
     Route: 048
  17. LORFENAMIN [Concomitant]
     Route: 065
  18. MS ONSHIPPU [Concomitant]
     Route: 062
  19. DEXALTIN [Concomitant]
     Route: 049
     Dates: start: 20091011
  20. NEUTROGIN [Concomitant]
     Indication: WHITE BLOOD CELL COUNT DECREASED
     Route: 058
     Dates: start: 20090907, end: 20090909
  21. BROTIZOLAN [Concomitant]
     Route: 048
     Dates: start: 20090928
  22. CALCIUM CARBONATE [Concomitant]
     Route: 050
     Dates: start: 20090922, end: 20090929

REACTIONS (8)
  - DYSPHAGIA [None]
  - DYSPNOEA [None]
  - WHITE BLOOD CELL COUNT DECREASED [None]
  - C-REACTIVE PROTEIN INCREASED [None]
  - DYSPHONIA [None]
  - PYREXIA [None]
  - OVARIAN CANCER [None]
  - DISSEMINATED INTRAVASCULAR COAGULATION [None]
